FAERS Safety Report 9869358 (Version 1)
Quarter: 2014Q1

REPORT INFORMATION
  Report Type: Spontaneous
  Country: US (occurrence: US)
  Receive Date: 20140205
  Receipt Date: 20140205
  Transmission Date: 20141002
  Serious: Yes (Hospitalization, Other)
  Sender: FDA-Public Use
  Company Number: US-JNJFOC-20140117973

PATIENT
  Age: 70 Year
  Sex: Male
  Weight: 68.04 kg

DRUGS (4)
  1. XARELTO [Suspect]
     Indication: THROMBOSIS PROPHYLAXIS
     Route: 048
     Dates: start: 201312, end: 20131223
  2. XARELTO [Suspect]
     Indication: HIP ARTHROPLASTY
     Route: 048
     Dates: start: 201312, end: 20131223
  3. LOVENOX [Suspect]
     Indication: ANTICOAGULANT THERAPY
     Route: 065
  4. COUMADIN [Suspect]
     Indication: ANTICOAGULANT THERAPY
     Route: 065
     Dates: start: 201312

REACTIONS (14)
  - Pulmonary embolism [Unknown]
  - Haematoma [Not Recovered/Not Resolved]
  - Abnormal loss of weight [Not Recovered/Not Resolved]
  - Procedural haemorrhage [Not Recovered/Not Resolved]
  - Coagulopathy [Unknown]
  - Abasia [Not Recovered/Not Resolved]
  - Arthropathy [Unknown]
  - Musculoskeletal stiffness [Unknown]
  - Eye movement disorder [Recovered/Resolved]
  - Discomfort [Unknown]
  - Pain [Unknown]
  - Mobility decreased [Unknown]
  - Ill-defined disorder [Recovered/Resolved]
  - Asthenia [Not Recovered/Not Resolved]
